FAERS Safety Report 23669111 (Version 1)
Quarter: 2024Q1

REPORT INFORMATION
  Report Type: Spontaneous
  Country: GR (occurrence: GR)
  Receive Date: 20240325
  Receipt Date: 20240325
  Transmission Date: 20240410
  Serious: Yes (Other)
  Sender: FDA-Public Use
  Company Number: GR-AMGEN-GRCSP2024055830

PATIENT
  Age: 82 Year
  Sex: Female

DRUGS (8)
  1. PROLIA [Suspect]
     Active Substance: DENOSUMAB
     Indication: Osteoporosis
     Dosage: UNK
     Route: 065
  2. PROLIA [Suspect]
     Active Substance: DENOSUMAB
     Indication: Polymyalgia rheumatica
  3. MEDROL [Concomitant]
     Active Substance: METHYLPREDNISOLONE
     Indication: Osteoporosis
     Dosage: 16 MILLIGRAM, QD (TABLET 1 X 1
     Route: 065
  4. MEDROL [Concomitant]
     Active Substance: METHYLPREDNISOLONE
     Indication: Polymyalgia rheumatica
     Dosage: 3 MILLIGRAM, QD
     Route: 065
  5. CALCIUM\CHOLECALCIFEROL [Concomitant]
     Active Substance: CALCIUM\CHOLECALCIFEROL
     Indication: Osteoporosis
     Dosage: UNK
     Route: 065
  6. CALCIUM\CHOLECALCIFEROL [Concomitant]
     Active Substance: CALCIUM\CHOLECALCIFEROL
     Indication: Polymyalgia rheumatica
  7. TERIPARATIDE [Concomitant]
     Active Substance: TERIPARATIDE
     Indication: Osteoporosis
     Dosage: UNK
     Route: 065
  8. TERIPARATIDE [Concomitant]
     Active Substance: TERIPARATIDE
     Indication: Polymyalgia rheumatica

REACTIONS (3)
  - Osteoporotic fracture [Unknown]
  - Treatment noncompliance [Unknown]
  - Spinal pain [Unknown]
